FAERS Safety Report 9782691 (Version 1)
Quarter: 2013Q4

REPORT INFORMATION
  Report Type: Spontaneous
  Country: FR (occurrence: FR)
  Receive Date: 20131226
  Receipt Date: 20131226
  Transmission Date: 20140711
  Serious: Yes (Other)
  Sender: FDA-Public Use
  Company Number: FR-ALLERGAN-1319968US

PATIENT
  Age: 64 Year
  Sex: Female

DRUGS (4)
  1. LUMIGAN SOLUTION 0.01% [Suspect]
     Indication: OCULAR HYPERTENSION
     Dosage: 1 DROP IN EACH EYE DAILY IN THE EVENING
     Route: 047
     Dates: start: 2011
  2. LEVOTHYROX [Concomitant]
     Dosage: 25 MG, UNK
  3. DOLIPRANE [Concomitant]
     Indication: INFECTION
  4. AUGMENTIN [Concomitant]
     Indication: INFECTION

REACTIONS (4)
  - Aspartate aminotransferase increased [Recovering/Resolving]
  - Alanine aminotransferase increased [Recovering/Resolving]
  - Gamma-glutamyltransferase increased [Recovering/Resolving]
  - Infection [Unknown]
